FAERS Safety Report 9536328 (Version 2)
Quarter: 2013Q3

REPORT INFORMATION
  Report Type: Spontaneous
  Country: JP (occurrence: JP)
  Receive Date: 20130919
  Receipt Date: 20130930
  Transmission Date: 20140515
  Serious: Yes (Hospitalization)
  Sender: FDA-Public Use
  Company Number: JP-UCBSA-097733

PATIENT
  Sex: 0

DRUGS (5)
  1. XYZAL [Suspect]
     Indication: PRURITUS
     Route: 048
     Dates: start: 20130823, end: 20130826
  2. TARCEVA [Suspect]
     Indication: LUNG NEOPLASM MALIGNANT
     Route: 048
     Dates: end: 20130823
  3. TARCEVA [Suspect]
     Indication: LUNG NEOPLASM MALIGNANT
     Route: 048
     Dates: start: 2013
  4. ALESION [Concomitant]
     Indication: PRURITUS
     Dosage: DOSAGE FORM: POR
     Route: 048
     Dates: end: 20130826
  5. ZOSYN [Concomitant]
     Indication: INFECTION

REACTIONS (3)
  - Hepatic function abnormal [Unknown]
  - Malaise [Unknown]
  - Infection [Unknown]
